FAERS Safety Report 10287174 (Version 1)
Quarter: 2014Q3

REPORT INFORMATION
  Report Type: Spontaneous
  Country: DE (occurrence: DE)
  Receive Date: 20140709
  Receipt Date: 20140709
  Transmission Date: 20150326
  Serious: Yes (Death, Other)
  Sender: FDA-Public Use
  Company Number: DE-WATSON-2014-14511

PATIENT
  Age: 42 Year
  Sex: Male
  Weight: 106 kg

DRUGS (4)
  1. AMISULPRIDE (UNKNOWN) [Suspect]
     Active Substance: AMISULPRIDE
     Indication: SCHIZOPHRENIA
     Dosage: 400 MG, UNKNOWN
     Route: 065
  2. IMIPRAMINE                         /00053902/ [Concomitant]
     Indication: SCHIZOPHRENIA
     Dosage: 100 MG, DAILY
     Route: 065
  3. HALOPERIDOL (WATSON LABORATORIES) [Interacting]
     Active Substance: HALOPERIDOL
     Indication: SCHIZOPHRENIA
     Dosage: 20 MG, PRN(IF REQUIRED)
     Route: 065
  4. BIPERIDEN [Concomitant]
     Active Substance: BIPERIDEN
     Indication: SCHIZOPHRENIA
     Dosage: 4 MG (RETARD), DAILY
     Route: 065

REACTIONS (6)
  - Neuroleptic malignant syndrome [Fatal]
  - Suicide attempt [Unknown]
  - Toxicity to various agents [Fatal]
  - Drug level above therapeutic [Unknown]
  - Ventricular fibrillation [Recovered/Resolved]
  - Potentiating drug interaction [Unknown]
